FAERS Safety Report 4300378-3 (Version None)
Quarter: 2004Q1

REPORT INFORMATION
  Report Type: 
  Country: None (occurrence: None)
  Receive Date: 20040220
  Receipt Date: 20040119
  Transmission Date: 20041129
  Serious: Yes (Other)
  Sender: FDA-Public Use
  Company Number: JP-GLAXOSMITHKLINE-B0320185A

PATIENT
  Sex: Male
  Weight: 3.5 kg

DRUGS (4)
  1. PAXIL [Suspect]
     Indication: NEUROSIS
     Dosage: 20MG PER DAY
     Dates: start: 20030614, end: 20040114
  2. DIAZEPAM [Suspect]
     Indication: AUTONOMIC NERVOUS SYSTEM IMBALANCE
     Dosage: 3MG PER DAY
     Dates: start: 20031128
  3. SILECE [Suspect]
     Indication: AUTONOMIC NERVOUS SYSTEM IMBALANCE
     Dosage: 2MG PER DAY
     Dates: start: 20031128, end: 20040114
  4. ZOLPIDEM TARTRATE [Concomitant]
     Indication: AUTONOMIC NERVOUS SYSTEM IMBALANCE
     Dosage: 10MG PER DAY
     Dates: end: 20031127

REACTIONS (4)
  - DRUG EXPOSURE DURING PREGNANCY [None]
  - NEONATAL RESPIRATORY ACIDOSIS [None]
  - NEONATAL RESPIRATORY DEPRESSION [None]
  - RESPIRATORY DEPRESSION [None]
